APPROVED DRUG PRODUCT: CALCIUM ACETATE
Active Ingredient: CALCIUM ACETATE
Strength: 667MG
Dosage Form/Route: CAPSULE;ORAL
Application: A202127 | Product #001 | TE Code: AB
Applicant: LUPIN LTD
Approved: Jul 9, 2015 | RLD: No | RS: No | Type: RX